FAERS Safety Report 6160072-3 (Version None)
Quarter: 2009Q2

REPORT INFORMATION
  Report Type: 
  Country: None (occurrence: None)
  Receive Date: 20090416
  Receipt Date: 20090406
  Transmission Date: 20091009
  Serious: Yes (Hospitalization)
  Sender: FDA-Public Use
  Company Number: 1000001189

PATIENT
  Age: 79 Year
  Sex: Female
  Weight: 46 kg

DRUGS (7)
  1. MEMANTINE HCL [Suspect]
     Indication: DEMENTIA ALZHEIMER'S TYPE
     Dosage: 20 MG (20 MG, 1 IN 1 D), ORAL
     Route: 048
     Dates: start: 20060528, end: 20080920
  2. PYRIDOXAL CALCIUM PHOSPHATE [Concomitant]
  3. FURSULTIAMINE [Concomitant]
  4. FERROUS CITRATE [Concomitant]
  5. TPN [Concomitant]
  6. SODIUM PICOSULFATE [Concomitant]
  7. REBAMIPIDE [Concomitant]

REACTIONS (3)
  - DYSPHAGIA [None]
  - PYELONEPHRITIS [None]
  - URINE KETONE BODY PRESENT [None]
